FAERS Safety Report 13288600 (Version 2)
Quarter: 2017Q1

REPORT INFORMATION
  Report Type: Spontaneous
  Country: US (occurrence: US)
  Receive Date: 20170302
  Receipt Date: 20170310
  Transmission Date: 20170428
  Serious: No
  Sender: FDA-Public Use
  Company Number: US-PFIZER INC-2017086325

PATIENT
  Age: 62 Year
  Sex: Female
  Weight: 53.6 kg

DRUGS (2)
  1. IBRANCE [Suspect]
     Active Substance: PALBOCICLIB
     Dosage: 125 MG, CYCLIC (1 QD, 21 ON 7 OFF  )
     Route: 048
     Dates: end: 201702
  2. IBRANCE [Suspect]
     Active Substance: PALBOCICLIB
     Indication: BREAST CANCER FEMALE
     Dosage: 125 MG, CYCLIC (1 QD, 21 ON 7 OFF )
     Route: 048
     Dates: start: 201701

REACTIONS (1)
  - Acne [Unknown]

NARRATIVE: CASE EVENT DATE: 20170224
